FAERS Safety Report 5375430-4 (Version None)
Quarter: 2007Q2

REPORT INFORMATION
  Report Type: 
  Country: None (occurrence: None)
  Receive Date: 20070629
  Receipt Date: 20070627
  Transmission Date: 20071010
  Serious: Yes (Other)
  Sender: FDA-Public Use
  Company Number: US-ROXANE LABORATORIES, INC-2007-DE-03801GD

PATIENT
  Age: 12 Year
  Sex: Male

DRUGS (2)
  1. SERTRALINE [Suspect]
  2. SERTRALINE [Suspect]

REACTIONS (4)
  - HOMICIDE [None]
  - MANIA [None]
  - PSYCHOTIC DISORDER [None]
  - PYROMANIA [None]
